FAERS Safety Report 18984415 (Version 1)
Quarter: 2021Q1

REPORT INFORMATION
  Report Type: Report from Study
  Country: AE (occurrence: AE)
  Receive Date: 20210309
  Receipt Date: 20210309
  Transmission Date: 20210420
  Serious: Yes (Other)
  Sender: FDA-Public Use
  Company Number: AE-SUN PHARMACEUTICAL INDUSTRIES LTD-2021RR-284839

PATIENT
  Age: 4 Year
  Sex: Male

DRUGS (4)
  1. RISPERIDONE. [Suspect]
     Active Substance: RISPERIDONE
     Indication: AUTISM SPECTRUM DISORDER
     Dosage: 2 MG IN THE MORNING AND 0.5 MG AT NIGHT
     Route: 065
  2. RISPERIDONE. [Suspect]
     Active Substance: RISPERIDONE
     Dosage: 1 MILLIGRAM IN THE MORNING
     Route: 065
  3. RISPERIDONE. [Suspect]
     Active Substance: RISPERIDONE
     Indication: AUTISM SPECTRUM DISORDER
     Dosage: 0.1 MILLIGRAM, BID
     Route: 065
     Dates: start: 201703
  4. RISPERIDONE. [Suspect]
     Active Substance: RISPERIDONE
     Dosage: 0.75 MILLIGRAM IN THE MORNING
     Route: 065

REACTIONS (2)
  - Blood prolactin increased [Unknown]
  - Off label use [Unknown]
